FAERS Safety Report 10230767 (Version 13)
Quarter: 2019Q2

REPORT INFORMATION
  Report Type: Report from Study
  Country: US (occurrence: US)
  Receive Date: 20140611
  Receipt Date: 20190531
  Transmission Date: 20190711
  Serious: Yes (Hospitalization, Other)
  Sender: FDA-Public Use
  Company Number: US-SA-2014SA045231

PATIENT
  Age: 60 Year
  Sex: Female

DRUGS (6)
  1. TERIFLUNOMIDE. [Suspect]
     Active Substance: TERIFLUNOMIDE
     Indication: MULTIPLE SCLEROSIS
     Dosage: 14 MG,QD
     Route: 048
     Dates: start: 20140402, end: 20190221
  2. PREVACID [Concomitant]
     Active Substance: LANSOPRAZOLE
     Indication: GASTROOESOPHAGEAL REFLUX DISEASE
     Dosage: 15 MG, QD
  3. ZANTAC [Concomitant]
     Active Substance: RANITIDINE HYDROCHLORIDE
     Indication: GASTROOESOPHAGEAL REFLUX DISEASE
     Dosage: 150 MG, BID
  4. TERIFLUNOMIDE. [Suspect]
     Active Substance: TERIFLUNOMIDE
     Indication: RELAPSING-REMITTING MULTIPLE SCLEROSIS
  5. GILENYA [Concomitant]
     Active Substance: FINGOLIMOD HYDROCHLORIDE
     Dosage: UNK
  6. CELEBREX [Concomitant]
     Active Substance: CELECOXIB

REACTIONS (41)
  - Cyst [Recovered/Resolved]
  - Crohn^s disease [Not Recovered/Not Resolved]
  - Nasal septum deviation [Recovered/Resolved]
  - Intervertebral disc protrusion [Unknown]
  - Burning sensation [Unknown]
  - Hypoaesthesia [Unknown]
  - Panic attack [Recovered/Resolved]
  - Gastrointestinal tract irritation [Unknown]
  - Computerised tomogram abnormal [Unknown]
  - Musculoskeletal disorder [Unknown]
  - Arthritis [Unknown]
  - Dyspnoea [Unknown]
  - Arthralgia [Unknown]
  - Unevaluable event [Unknown]
  - Pain [Recovered/Resolved]
  - Dry mouth [Unknown]
  - Intervertebral disc degeneration [Unknown]
  - Hepatic enzyme increased [Recovered/Resolved]
  - Multiple sclerosis [Recovering/Resolving]
  - Fall [Unknown]
  - Constipation [Unknown]
  - Influenza [Recovered/Resolved]
  - Impaired gastric emptying [Recovering/Resolving]
  - Multiple sclerosis relapse [Unknown]
  - Nausea [Unknown]
  - Diarrhoea [Unknown]
  - Social avoidant behaviour [Unknown]
  - Blood potassium decreased [Unknown]
  - Rectal prolapse [Unknown]
  - Oophorectomy [Unknown]
  - Muscular weakness [Unknown]
  - Burning mouth syndrome [Unknown]
  - Throat irritation [Unknown]
  - Sensory loss [Unknown]
  - Memory impairment [Unknown]
  - Amnesia [Not Recovered/Not Resolved]
  - Gastrointestinal disorder [Not Recovered/Not Resolved]
  - Tongue discomfort [Not Recovered/Not Resolved]
  - Weight decreased [Unknown]
  - Hypoaesthesia oral [Not Recovered/Not Resolved]
  - Mouth breathing [Unknown]

NARRATIVE: CASE EVENT DATE: 20140404
